FAERS Safety Report 7958739 (Version 14)
Quarter: 2014Q4

REPORT INFORMATION
  Report Type: Spontaneous
  Country: US (occurrence: US)
  Receive Date: 20110524
  Receipt Date: 20141028
  Transmission Date: 20150529
  Serious: Yes (Hospitalization, Congenital Anomaly, Other)
  Sender: FDA-Public Use
  Company Number: US-PFIZER INC-2011105532

PATIENT
  Sex: Male
  Weight: 3.3 kg

DRUGS (28)
  1. KEPPRA [Concomitant]
     Active Substance: LEVETIRACETAM
     Dosage: 750 MG, 2X/DAY
     Route: 064
     Dates: start: 20090429
  2. ZOLOFT [Suspect]
     Active Substance: SERTRALINE HYDROCHLORIDE
     Indication: ANXIETY
     Dosage: 50 MG, 1X/DAY
     Route: 064
     Dates: start: 20031218
  3. LEVETIRACETAM. [Concomitant]
     Active Substance: LEVETIRACETAM
     Dosage: 750 MG, UNK
     Route: 064
     Dates: start: 20090402, end: 20091017
  4. COD-LIVER OIL [Concomitant]
     Active Substance: FISH OIL
     Dosage: UNK
     Route: 064
     Dates: start: 20090603
  5. ZOLOFT [Suspect]
     Active Substance: SERTRALINE HYDROCHLORIDE
     Indication: DEPRESSION
     Dosage: 100 MG, ONE AND HALF TABLET EVERY DAY
     Route: 064
     Dates: start: 20081118
  6. ZOLOFT [Suspect]
     Active Substance: SERTRALINE HYDROCHLORIDE
     Dosage: UNK
     Route: 064
     Dates: start: 20050519
  7. FOLATE [Concomitant]
     Active Substance: FOLATE SODIUM
     Dosage: UNK
     Route: 064
  8. LAMOTRIGINE. [Concomitant]
     Active Substance: LAMOTRIGINE
     Dosage: 200 MG, 2X/DAY
     Route: 064
     Dates: start: 20090928
  9. HYDROCODONE W/ACETAMINOPHEN [Concomitant]
     Active Substance: ACETAMINOPHEN\HYDROCODONE BITARTRATE
     Dosage: 5 MG/500 MG
     Route: 064
     Dates: start: 20091006
  10. VITAMIN D [Concomitant]
     Active Substance: CHOLECALCIFEROL
     Dosage: UNK
     Route: 064
     Dates: start: 20090603
  11. KEPPRA [Concomitant]
     Active Substance: LEVETIRACETAM
     Indication: SEIZURE
     Dosage: 500 MG, 2X/DAY
     Route: 064
     Dates: start: 20041221
  12. VITAMIN B12 [Concomitant]
     Active Substance: CYANOCOBALAMIN
     Dosage: UNK
     Route: 064
     Dates: start: 20090603
  13. DILANTIN [Concomitant]
     Active Substance: PHENYTOIN
     Dosage: UNK
     Route: 064
     Dates: start: 20090429
  14. ZOLOFT [Suspect]
     Active Substance: SERTRALINE HYDROCHLORIDE
     Indication: AFFECTIVE DISORDER
     Dosage: 150 MG, ONE TABLET DAILY
     Route: 064
     Dates: start: 20090112
  15. LEVETIRACETAM. [Concomitant]
     Active Substance: LEVETIRACETAM
     Dosage: 500 MG, ONE AND HALF TABLET TWICE DAILY
     Route: 064
     Dates: start: 20080110, end: 20090316
  16. ALPRAZOLAM. [Concomitant]
     Active Substance: ALPRAZOLAM
     Dosage: 0.25 MG, UNK
     Route: 064
     Dates: start: 20090804, end: 20090806
  17. ZOLOFT [Suspect]
     Active Substance: SERTRALINE HYDROCHLORIDE
     Dosage: 50 MG, 2X/DAY
     Route: 064
     Dates: start: 20090527
  18. ZOLOFT [Suspect]
     Active Substance: SERTRALINE HYDROCHLORIDE
     Dosage: 100 MG, 1X/DAY
     Route: 064
  19. LAMOTRIGINE. [Concomitant]
     Active Substance: LAMOTRIGINE
     Dosage: 100 MG, UNK
     Route: 064
     Dates: start: 20081017, end: 20091201
  20. FOLIC ACID. [Concomitant]
     Active Substance: FOLIC ACID
     Dosage: 1 MG, UNK
     Route: 064
     Dates: start: 20090311, end: 20090923
  21. FOLIC ACID. [Concomitant]
     Active Substance: FOLIC ACID
     Dosage: 4 MG, DAILY
     Route: 064
     Dates: start: 20090112
  22. VITAMIN B6 [Concomitant]
     Active Substance: PYRIDOXINE HYDROCHLORIDE
     Dosage: 100 MG, DAILY
     Route: 064
     Dates: start: 20090421
  23. MULTIVITAMINS [Concomitant]
     Active Substance: VITAMINS
     Dosage: ONE TABLET DAILY
     Route: 064
     Dates: start: 20090421
  24. GUAIFENESIN. [Concomitant]
     Active Substance: GUAIFENESIN
     Dosage: UNK
     Route: 064
     Dates: start: 20090429
  25. LAMICTAL [Concomitant]
     Active Substance: LAMOTRIGINE
     Indication: SEIZURE
     Dosage: 100 MG, 2X/DAY
     Route: 064
     Dates: start: 20090112
  26. IRON [Concomitant]
     Active Substance: IRON
     Dosage: UNK
     Route: 064
  27. PROPOXYPHENE NAPSYLATE W/ACETAMINOPHENE [Concomitant]
     Active Substance: ACETAMINOPHEN\PROPOXYPHENE NAPSYLATE
     Dosage: 100/650, UNK
     Route: 064
     Dates: start: 20090529
  28. DARVOCET-N 100 [Concomitant]
     Active Substance: ACETAMINOPHEN\PROPOXYPHENE NAPSYLATE
     Indication: BACK PAIN
     Dosage: UNK EVERY 4 HOURS
     Route: 064
     Dates: start: 20090529

REACTIONS (29)
  - Foetal exposure during pregnancy [Unknown]
  - Cyanosis [Unknown]
  - Respiratory distress [Unknown]
  - Motor developmental delay [Unknown]
  - Road traffic accident [Unknown]
  - Insomnia [Unknown]
  - Cough [Unknown]
  - Jaundice [Unknown]
  - Upper respiratory tract infection [Unknown]
  - Papule [Unknown]
  - Crying [Unknown]
  - Premature baby [Unknown]
  - Tachypnoea [Unknown]
  - Atrial septal defect [Unknown]
  - Sepsis neonatal [Unknown]
  - Skin discolouration [Unknown]
  - Rhinorrhoea [Unknown]
  - Constipation [Unknown]
  - Respiratory disorder [Unknown]
  - Ear congestion [Recovered/Resolved]
  - Diarrhoea [Unknown]
  - Irritability [Unknown]
  - Pyrexia [Unknown]
  - Heart disease congenital [Unknown]
  - Autonomic nervous system imbalance [Unknown]
  - Ammonia increased [Unknown]
  - Failure to thrive [Recovering/Resolving]
  - Congenital anomaly [Unknown]
  - Hypoxia [Unknown]

NARRATIVE: CASE EVENT DATE: 20091017
